FAERS Safety Report 8235997-5 (Version None)
Quarter: 2012Q1

REPORT INFORMATION
  Report Type: 
  Country: None (occurrence: None)
  Receive Date: 20120326
  Receipt Date: 20120320
  Transmission Date: 20120608
  Serious: Yes (Other)
  Sender: FDA-Public Use
  Company Number: AU-ASTRAZENECA-2012SE11047

PATIENT
  Age: 855 Month
  Sex: Female
  Weight: 68.1 kg

DRUGS (8)
  1. DIAMICRON [Concomitant]
  2. METFORMIN HCL [Concomitant]
  3. NEXIUM [Suspect]
     Indication: GASTROOESOPHAGEAL REFLUX DISEASE
     Route: 048
     Dates: start: 20081125, end: 20120213
  4. PANADOL OSTEO [Concomitant]
  5. PERINDOPRIL ERBUMINE [Concomitant]
  6. FELODUR [Concomitant]
  7. CARDIPRIN [Concomitant]
  8. ZOCOR [Concomitant]

REACTIONS (5)
  - FLATULENCE [None]
  - DIARRHOEA [None]
  - NIGHT SWEATS [None]
  - DIVERTICULUM [None]
  - INSOMNIA [None]
